FAERS Safety Report 10005326 (Version 2)
Quarter: 2014Q1

REPORT INFORMATION
  Report Type: Spontaneous
  Country: US (occurrence: US)
  Receive Date: 20140312
  Receipt Date: 20140312
  Transmission Date: 20141002
  Serious: Yes (Death)
  Sender: FDA-Public Use
  Company Number: US-GE HEALTHCARE MEDICAL DIAGNOSTICS-OSCN-PR-0806S-0337

PATIENT
  Age: 70 Year
  Sex: Male

DRUGS (5)
  1. OMNISCAN [Suspect]
     Indication: DIZZINESS
     Route: 042
     Dates: start: 20010822, end: 20010822
  2. OMNISCAN [Suspect]
     Indication: LOSS OF CONSCIOUSNESS
     Route: 042
     Dates: start: 20020909, end: 20020909
  3. OMNISCAN [Suspect]
     Route: 042
     Dates: start: 20040712, end: 20040712
  4. GADOLINIUM (UNSPECIFIED) [Suspect]
     Indication: RENAL ARTERY STENOSIS
     Route: 042
     Dates: start: 20020912, end: 20020912
  5. VISIPAQUE 320 [Suspect]
     Dates: start: 20020912, end: 20020912

REACTIONS (1)
  - Nephrogenic systemic fibrosis [Not Recovered/Not Resolved]
